FAERS Safety Report 5096451-5 (Version None)
Quarter: 2006Q3

REPORT INFORMATION
  Report Type: 
  Country: None (occurrence: None)
  Receive Date: 20060905
  Receipt Date: 20060412
  Transmission Date: 20061208
  Serious: Yes (Death)
  Sender: FDA-Public Use
  Company Number: JP-BRISTOL-MYERS SQUIBB COMPANY-13343652

PATIENT
  Age: 47 Year
  Sex: Female

DRUGS (2)
  1. TAXOL [Suspect]
     Indication: CERVIX CARCINOMA
     Route: 042
     Dates: start: 20060319, end: 20060319
  2. PARAPLATIN [Suspect]
     Indication: CERVIX CARCINOMA
     Route: 042
     Dates: start: 20060319, end: 20060319

REACTIONS (5)
  - BACTERIAL CULTURE POSITIVE [None]
  - ILEUS [None]
  - PLATELET COUNT ABNORMAL [None]
  - PNEUMONIA ASPIRATION [None]
  - SEPTIC SHOCK [None]
